FAERS Safety Report 7687236-1 (Version None)
Quarter: 2011Q3

REPORT INFORMATION
  Report Type: 
  Country: None (occurrence: None)
  Receive Date: 20110816
  Receipt Date: 20110503
  Transmission Date: 20111222
  Serious: Yes (Hospitalization)
  Sender: FDA-Public Use
  Company Number: GB-GENENTECH-318369

PATIENT
  Sex: Female
  Weight: 89 kg

DRUGS (8)
  1. RITUXIMAB [Suspect]
     Indication: VASCULITIS
     Dosage: UNK
     Route: 065
  2. CALCICHEW D3 [Concomitant]
     Indication: PRODUCT USED FOR UNKNOWN INDICATION
     Dosage: UNK UNK, BID
  3. PREDNISOLONE [Concomitant]
     Indication: PRODUCT USED FOR UNKNOWN INDICATION
     Dosage: 22.5 MG, UNK
  4. OMEPRAZOLE [Concomitant]
     Indication: PRODUCT USED FOR UNKNOWN INDICATION
     Dosage: 20 MG, UNK
  5. CYCLOPHOSPHAMIDE [Suspect]
     Indication: VASCULITIS
     Dosage: UNK
     Route: 065
  6. COZAAR [Concomitant]
     Indication: PRODUCT USED FOR UNKNOWN INDICATION
     Dosage: UNK
  7. BACTRIM [Concomitant]
     Indication: PRODUCT USED FOR UNKNOWN INDICATION
     Dosage: UNK UNK, 2/WEEK
  8. MYCOSTATIN [Concomitant]
     Indication: PRODUCT USED FOR UNKNOWN INDICATION
     Dosage: UNK

REACTIONS (1)
  - PULMONARY EMBOLISM [None]
